FAERS Safety Report 12352142 (Version 1)
Quarter: 2016Q2

REPORT INFORMATION
  Report Type: Spontaneous
  Country: CH (occurrence: FR)
  Receive Date: 20160510
  Receipt Date: 20160510
  Transmission Date: 20160815
  Serious: Yes (Hospitalization)
  Sender: FDA-Public Use
  Company Number: CH-LPDUSPRD-20160396

PATIENT
  Age: 57 Year
  Sex: Female

DRUGS (3)
  1. VENOFER [Suspect]
     Active Substance: IRON SUCROSE
     Dosage: 300 MG SINGLE DOSE
     Route: 042
     Dates: start: 20160404, end: 20160404
  2. AUGMENTIN [Suspect]
     Active Substance: AMOXICILLIN\CLAVULANATE POTASSIUM
     Dosage: DOSE NOT PROVIDED
     Route: 042
     Dates: start: 20160404
  3. EPREX [Suspect]
     Active Substance: ERYTHROPOIETIN
     Dosage: 40000 IU DAILY DOSE
     Route: 058
     Dates: start: 20160404

REACTIONS (1)
  - Diabetes insipidus [Unknown]

NARRATIVE: CASE EVENT DATE: 20160405
